FAERS Safety Report 17063733 (Version 1)
Quarter: 2019Q4

REPORT INFORMATION
  Report Type: Spontaneous
  Country: US (occurrence: US)
  Receive Date: 20191122
  Receipt Date: 20191122
  Transmission Date: 20200122
  Serious: No
  Sender: FDA-Public Use
  Company Number: US-MYLANLABS-2019M1106872

PATIENT
  Age: 37 Year
  Sex: Female
  Weight: 51 kg

DRUGS (1)
  1. NORETHINDRONE TABLETS, USP [Suspect]
     Active Substance: NORETHINDRONE
     Indication: CONTRACEPTION
     Dosage: 0.35 MILLIGRAM, QD
     Route: 048
     Dates: start: 20191104, end: 20191104

REACTIONS (8)
  - Nausea [Recovering/Resolving]
  - Abdominal pain [Recovering/Resolving]
  - Taste disorder [Not Recovered/Not Resolved]
  - Food aversion [Not Recovered/Not Resolved]
  - Malaise [Recovering/Resolving]
  - Diarrhoea [Recovering/Resolving]
  - Dizziness [Recovering/Resolving]
  - Vomiting [Recovering/Resolving]

NARRATIVE: CASE EVENT DATE: 20191105
